FAERS Safety Report 9923631 (Version 1)
Quarter: 2014Q1

REPORT INFORMATION
  Report Type: Spontaneous
  Country: US (occurrence: US)
  Receive Date: 20140225
  Receipt Date: 20140225
  Transmission Date: 20141002
  Serious: No
  Sender: FDA-Public Use
  Company Number: US-AMGEN-USASP2013090609

PATIENT
  Age: 10 Year
  Sex: Male

DRUGS (4)
  1. ENBREL [Suspect]
     Indication: JUVENILE IDIOPATHIC ARTHRITIS
     Dosage: 15 MG, 2 TIMES/WK
     Route: 058
     Dates: start: 201305
  2. IRON [Concomitant]
     Dosage: UNK
  3. ALBUTEROL                          /00139501/ [Concomitant]
     Dosage: UNK
  4. CLARITIN                           /00413701/ [Concomitant]
     Dosage: UNK

REACTIONS (1)
  - Nasopharyngitis [Unknown]
